FAERS Safety Report 24067642 (Version 3)
Quarter: 2024Q3

REPORT INFORMATION
  Report Type: Report from Study
  Country: US (occurrence: US)
  Receive Date: 20240710
  Receipt Date: 20240802
  Transmission Date: 20241017
  Serious: Yes (Other)
  Sender: RANBAXY
  Company Number: US-SUN PHARMACEUTICAL INDUSTRIES LTD-2024R1-455181

PATIENT
  Age: 36 Year
  Sex: Female

DRUGS (1)
  1. ABSORICA [Suspect]
     Active Substance: ISOTRETINOIN
     Indication: Acne
     Dosage: 30 MILLIGRAM, BID
     Route: 048
     Dates: start: 20240606, end: 20240624

REACTIONS (3)
  - Exposure during pregnancy [Unknown]
  - Therapy change [Unknown]
  - Fatigue [Unknown]

NARRATIVE: CASE EVENT DATE: 20240624
